FAERS Safety Report 11091926 (Version 1)
Quarter: 2015Q2

REPORT INFORMATION
  Report Type: Spontaneous
  Country: US (occurrence: US)
  Receive Date: 20150505
  Receipt Date: 20150505
  Transmission Date: 20150821
  Serious: No
  Sender: FDA-Public Use
  Company Number: US-BAYER-2015-184418

PATIENT
  Age: 74 Year
  Sex: Female
  Weight: 67.57 kg

DRUGS (3)
  1. CLARITIN REDITABS [Suspect]
     Active Substance: LORATADINE
     Indication: SEASONAL ALLERGY
     Dosage: 1 DOSE, QD
     Route: 048
     Dates: start: 20150424, end: 20150430
  2. ESTER-C [CALCIUM ASCORBATE] [Concomitant]
     Dosage: UNK
  3. KRILL OIL [Concomitant]
     Active Substance: DIETARY SUPPLEMENT

REACTIONS (1)
  - Drug ineffective [Unknown]

NARRATIVE: CASE EVENT DATE: 20150424
